FAERS Safety Report 9508965 (Version 1)
Quarter: 2013Q3

REPORT INFORMATION
  Report Type: Spontaneous
  Country: US (occurrence: US)
  Receive Date: 20130909
  Receipt Date: 20130909
  Transmission Date: 20140515
  Serious: No
  Sender: FDA-Public Use
  Company Number: US-BRISTOL-MYERS SQUIBB COMPANY-19065101

PATIENT
  Age: 64 Year
  Sex: Female
  Weight: 64.85 kg

DRUGS (8)
  1. ABILIFY [Suspect]
     Indication: BIPOLAR DISORDER
  2. LITHIUM [Concomitant]
  3. WELLBUTRIN [Concomitant]
  4. TRAZODONE HCL [Concomitant]
  5. TRAMADOL [Concomitant]
  6. TYLENOL [Concomitant]
  7. HYDROCODONE [Concomitant]
  8. PRILOSEC [Concomitant]
     Indication: GASTRIC DISORDER

REACTIONS (3)
  - Nerve compression [Recovering/Resolving]
  - Muscular weakness [Recovering/Resolving]
  - Pain in extremity [Recovering/Resolving]
